FAERS Safety Report 11848730 (Version 1)
Quarter: 2015Q4

REPORT INFORMATION
  Report Type: Spontaneous
  Country: IT (occurrence: IT)
  Receive Date: 20151218
  Receipt Date: 20151218
  Transmission Date: 20160305
  Serious: Yes (Congenital Anomaly, Other)
  Sender: FDA-Public Use
  Company Number: IT-BRISTOL-MYERS SQUIBB COMPANY-2000SUS0855

PATIENT
  Age: 0 Day
  Sex: Male
  Weight: 3.45 kg

DRUGS (7)
  1. SUSTIVA [Suspect]
     Active Substance: EFAVIRENZ
     Indication: PRODUCT USED FOR UNKNOWN INDICATION
     Route: 064
     Dates: start: 20000112, end: 20000217
  2. FOLATE [Concomitant]
     Active Substance: FOLATE SODIUM
     Indication: PRODUCT USED FOR UNKNOWN INDICATION
     Dosage: 5 MG, QD
     Route: 064
  3. ZERIT [Suspect]
     Active Substance: STAVUDINE
     Indication: PRODUCT USED FOR UNKNOWN INDICATION
     Dosage: 40 MG, BID
     Route: 064
     Dates: start: 20000430, end: 20001006
  4. EPIVIR [Suspect]
     Active Substance: LAMIVUDINE
     Indication: PRODUCT USED FOR UNKNOWN INDICATION
     Route: 064
     Dates: start: 20000430, end: 20001006
  5. RETROVIR [Suspect]
     Active Substance: ZIDOVUDINE
     Indication: PRODUCT USED FOR UNKNOWN INDICATION
     Dosage: 600 MG, QD
     Route: 064
     Dates: start: 20000112, end: 20000217
  6. COMBIVIR [Suspect]
     Active Substance: LAMIVUDINE\ZIDOVUDINE
     Indication: PRODUCT USED FOR UNKNOWN INDICATION
     Dosage: 1 DF, BID
     Route: 064
     Dates: start: 20000112, end: 20000217
  7. VIRACEPT [Suspect]
     Active Substance: NELFINAVIR MESYLATE
     Indication: PRODUCT USED FOR UNKNOWN INDICATION
     Dosage: 250 MG, UNK
     Route: 064
     Dates: start: 20000430, end: 20001006

REACTIONS (2)
  - Meningomyelocele [Recovered/Resolved]
  - Foetal exposure during pregnancy [Unknown]

NARRATIVE: CASE EVENT DATE: 20001006
